FAERS Safety Report 9833537 (Version 2)
Quarter: 2014Q1

REPORT INFORMATION
  Report Type: Spontaneous
  Country: FR (occurrence: FR)
  Receive Date: 20140122
  Receipt Date: 20140321
  Transmission Date: 20141002
  Serious: Yes (Hospitalization)
  Sender: FDA-Public Use
  Company Number: FR-009507513-1401FRA007010

PATIENT
  Age: 74 Year
  Sex: Male

DRUGS (4)
  1. NORSET [Suspect]
     Dosage: 1 DF, BID
     Route: 048
     Dates: start: 20110817, end: 20131230
  2. KARDEGIC [Suspect]
     Route: 048
  3. FLECTOR [Suspect]
     Dosage: 1 DF, BID
     Route: 048
     Dates: start: 20131217, end: 20131223
  4. CORTANCYL [Suspect]
     Dosage: 60 MG, QD
     Route: 048
     Dates: start: 20131224, end: 20131226

REACTIONS (1)
  - Haematoma [Recovered/Resolved]
